FAERS Safety Report 18911944 (Version 2)
Quarter: 2021Q2

REPORT INFORMATION
  Report Type: Report from Study
  Country: None (occurrence: CO)
  Receive Date: 20210219
  Receipt Date: 20210424
  Transmission Date: 20210717
  Serious: Yes (Hospitalization, Disabling, Other)
  Sender: FDA-Public Use
  Company Number: CO-ABBVIE-21K-036-3778810-00

PATIENT
  Age: 69 Year
  Sex: Male
  Weight: 77 kg

DRUGS (4)
  1. ZEMPLAR [Suspect]
     Active Substance: PARICALCITOL
     Indication: HYPERPARATHYROIDISM SECONDARY
     Route: 048
     Dates: start: 20140612, end: 20210108
  2. METOPROLOL. [Concomitant]
     Active Substance: METOPROLOL
     Indication: PRODUCT USED FOR UNKNOWN INDICATION
  3. LOSARTAN. [Concomitant]
     Active Substance: LOSARTAN
     Indication: PRODUCT USED FOR UNKNOWN INDICATION
  4. ZEMPLAR [Suspect]
     Active Substance: PARICALCITOL
     Indication: CHRONIC KIDNEY DISEASE

REACTIONS (23)
  - Renal failure [Recovering/Resolving]
  - Mental disorder [Recovering/Resolving]
  - Dementia Alzheimer^s type [Recovering/Resolving]
  - Catheter placement [Unknown]
  - Fluid retention [Recovering/Resolving]
  - Device issue [Unknown]
  - Syncope [Recovering/Resolving]
  - Fall [Recovering/Resolving]
  - Speech disorder [Unknown]
  - Tongue disorder [Recovering/Resolving]
  - Blood parathyroid hormone abnormal [Recovering/Resolving]
  - Delirium [Recovering/Resolving]
  - Asthenia [Recovering/Resolving]
  - Pyrexia [Recovering/Resolving]
  - Protein total abnormal [Recovering/Resolving]
  - SARS-CoV-2 test positive [Recovered/Resolved with Sequelae]
  - Urethral disorder [Recovering/Resolving]
  - Hypotension [Recovering/Resolving]
  - Diarrhoea [Recovering/Resolving]
  - Mobility decreased [Recovering/Resolving]
  - Decreased appetite [Recovering/Resolving]
  - Device related infection [Recovering/Resolving]
  - Dry mouth [Recovering/Resolving]

NARRATIVE: CASE EVENT DATE: 20201230
